FAERS Safety Report 4679902-7 (Version None)
Quarter: 2005Q2

REPORT INFORMATION
  Report Type: 
  Country: None (occurrence: None)
  Receive Date: 20050602
  Receipt Date: 20050524
  Transmission Date: 20051028
  Serious: Yes (Other)
  Sender: FDA-Public Use
  Company Number: PHBS2005BE07446

PATIENT
  Age: 70 Year
  Sex: Female

DRUGS (7)
  1. AREDIA [Suspect]
     Indication: MULTIPLE MYELOMA
     Dosage: UNK, ONCE/SINGLE
     Route: 042
     Dates: start: 20030430, end: 20030430
  2. ZOMETA [Suspect]
     Indication: MULTIPLE MYELOMA
     Route: 042
     Dates: start: 20030501, end: 20050323
  3. ZOMETA [Suspect]
     Dosage: UNK, ONCE/SINGLE
     Route: 042
     Dates: start: 20050518, end: 20050518
  4. ALKERAN [Concomitant]
     Route: 065
     Dates: start: 20030506, end: 20031001
  5. MEDROL [Concomitant]
     Route: 065
     Dates: start: 20030506, end: 20031001
  6. INTRON A [Concomitant]
     Route: 065
     Dates: start: 20041123
  7. THALIDOMIDE [Concomitant]
     Route: 065
     Dates: start: 20050501

REACTIONS (6)
  - ASEPTIC NECROSIS BONE [None]
  - CEREBELLAR INFARCTION [None]
  - DENTAL TREATMENT [None]
  - IMPAIRED HEALING [None]
  - PAIN IN JAW [None]
  - WOUND DEBRIDEMENT [None]
